FAERS Safety Report 10547934 (Version 1)
Quarter: 2014Q4

REPORT INFORMATION
  Report Type: Spontaneous
  Country: US (occurrence: None)
  Receive Date: 20141027
  Receipt Date: 20141027
  Transmission Date: 20150529
  Serious: No
  Sender: FDA-Public Use
  Company Number: None

PATIENT
  Age: 78 Year
  Sex: Male
  Weight: 79.5 kg

DRUGS (3)
  1. REVLIMID [Suspect]
     Active Substance: LENALIDOMIDE
     Indication: PLASMA CELL MYELOMA
     Dosage: X21/28
     Dates: start: 201403
  2. HYDROCODONE-ACETAMINOPHEN (NORCO) [Concomitant]
  3. DEXAMETHASONE (DECADRON) [Concomitant]

REACTIONS (3)
  - Swollen tongue [None]
  - Oral discomfort [None]
  - Glossodynia [None]
